FAERS Safety Report 8965072 (Version 1)
Quarter: 2012Q4

REPORT INFORMATION
  Report Type: 
  Country: FR (occurrence: FR)
  Receive Date: 20121214
  Receipt Date: 20121214
  Transmission Date: 20130627
  Serious: Yes (Other)
  Sender: FDA-Public Use
  Company Number: FR-ASTRAZENECA-2012SE92222

PATIENT
  Age: 768 Month
  Sex: Male

DRUGS (2)
  1. CRESTOR [Suspect]
     Indication: CARDIOVASCULAR EVENT PROPHYLAXIS
     Route: 048
     Dates: start: 201208, end: 201209
  2. KARDEGIC [Concomitant]

REACTIONS (3)
  - Joint stiffness [Not Recovered/Not Resolved]
  - Polyneuropathy [Not Recovered/Not Resolved]
  - Muscle spasms [Not Recovered/Not Resolved]
